FAERS Safety Report 18917079 (Version 1)
Quarter: 2021Q1

REPORT INFORMATION
  Report Type: Spontaneous
  Country: US (occurrence: US)
  Receive Date: 20210219
  Receipt Date: 20210219
  Transmission Date: 20210420
  Serious: Yes (Life-Threatening, Hospitalization)
  Sender: FDA-Public Use
  Company Number: US-PFIZER INC-2021154089

PATIENT
  Age: 71 Year
  Sex: Male
  Weight: 101 kg

DRUGS (1)
  1. HEPARIN SODIUM. [Suspect]
     Active Substance: HEPARIN SODIUM
     Indication: COAGULOPATHY
     Dosage: 500 IU, SINGLE, (ROUTS: INTRAVENOUS PUSH, DOSE: 500 UNITS, FREQUENCY: ONCE)
     Route: 042
     Dates: start: 20210208, end: 20210208

REACTIONS (5)
  - Nausea [Unknown]
  - Flushing [Unknown]
  - Unresponsive to stimuli [Unknown]
  - Drug hypersensitivity [Unknown]
  - Malaise [Unknown]

NARRATIVE: CASE EVENT DATE: 20210208
